FAERS Safety Report 6566800-7 (Version None)
Quarter: 2010Q1

REPORT INFORMATION
  Report Type: 
  Country: None (occurrence: None)
  Receive Date: 20100202
  Receipt Date: 20100122
  Transmission Date: 20100710
  Serious: Yes (Other)
  Sender: FDA-Public Use
  Company Number: KP-WATSON-2010-00863

PATIENT
  Age: 42 Year
  Sex: Female

DRUGS (2)
  1. FLUOROURACIL [Suspect]
     Indication: GASTRIC CANCER
     Dosage: UNK
     Route: 042
  2. OXALIPLATIN [Concomitant]
     Indication: GASTRIC CANCER

REACTIONS (2)
  - ENCEPHALOPATHY [None]
  - GRAND MAL CONVULSION [None]
